FAERS Safety Report 7596897-7 (Version None)
Quarter: 2011Q3

REPORT INFORMATION
  Report Type: 
  Country: None (occurrence: None)
  Receive Date: 20110708
  Receipt Date: 20110705
  Transmission Date: 20111222
  Serious: Yes (Hospitalization, Other)
  Sender: FDA-Public Use
  Company Number: US-PFIZER INC-2011151323

PATIENT
  Sex: Male

DRUGS (2)
  1. DILANTIN-125 [Suspect]
     Dosage: UNK
  2. VALIUM [Suspect]
     Dosage: 20 MG, UNK

REACTIONS (4)
  - CONVULSION [None]
  - MENTAL IMPAIRMENT [None]
  - RESPIRATORY DEPRESSION [None]
  - DRUG LEVEL DECREASED [None]
